FAERS Safety Report 5117944-8 (Version None)
Quarter: 2006Q3

REPORT INFORMATION
  Report Type: 
  Country: None (occurrence: None)
  Receive Date: 20060926
  Receipt Date: 20060914
  Transmission Date: 20061208
  Serious: Yes (Hospitalization)
  Sender: FDA-Public Use
  Company Number: 2006105844

PATIENT
  Age: 67 Year
  Sex: Female

DRUGS (4)
  1. AMLODIPINE [Suspect]
     Dosage: 5 MG (5 MG, INTERVAL: EVERY DAY), ORAL
     Route: 048
  2. TEGRETOL [Suspect]
     Dosage: 2DF (400 MG, INTERVAL: EVERY DAY), ORAL
     Route: 048
     Dates: start: 20060613, end: 20060717
  3. ALEPSAL           (BELLADONNA EXTRACT, CAFFEINE, PHENOBARBITAL) [Suspect]
     Dosage: 100 MG (50 MG, BID), ORAL
     Route: 048
     Dates: start: 20060623
  4. LAMICTAL [Suspect]
     Indication: DRUG USE FOR UNKNOWN INDICATION
     Dosage: 100 MG (100 MG, QD), ORAL
     Route: 048
     Dates: start: 20060704, end: 20060806

REACTIONS (6)
  - CEREBROVASCULAR ACCIDENT [None]
  - CULTURE URINE POSITIVE [None]
  - DRUG INEFFECTIVE [None]
  - HAEMORRHAGIC STROKE [None]
  - PULMONARY EMBOLISM [None]
  - PYREXIA [None]
